FAERS Safety Report 7765770-3 (Version None)
Quarter: 2011Q3

REPORT INFORMATION
  Report Type: 
  Country: None (occurrence: None)
  Receive Date: 20110921
  Receipt Date: 20110916
  Transmission Date: 20111222
  Serious: Yes (Hospitalization, Other)
  Sender: FDA-Public Use
  Company Number: US-ABBOTT-11P-163-0856096-00

PATIENT
  Sex: Male
  Weight: 74.91 kg

DRUGS (7)
  1. NASONEX [Concomitant]
     Indication: HYPERSENSITIVITY
  2. BENADRYL [Concomitant]
     Indication: SEASONAL ALLERGY
     Route: 048
  3. LOVASTATIN [Concomitant]
     Indication: BLOOD CHOLESTEROL INCREASED
     Route: 048
  4. DIOVAN [Concomitant]
     Indication: HYPERTENSION
     Route: 048
  5. AVODART [Concomitant]
     Indication: PROSTATOMEGALY
  6. HUMIRA [Suspect]
     Indication: PSORIASIS
     Dates: start: 20110201
  7. GENERIC CLOBETASOL [Concomitant]
     Indication: PRODUCT USED FOR UNKNOWN INDICATION
     Route: 061

REACTIONS (2)
  - PERINEAL PAIN [None]
  - EPIDIDYMITIS [None]
